FAERS Safety Report 9447782 (Version 2)
Quarter: 2013Q3

REPORT INFORMATION
  Report Type: Spontaneous
  Country: PL (occurrence: None)
  Receive Date: 20130805
  Receipt Date: 20130815
  Transmission Date: 20140515
  Serious: Yes (Hospitalization)
  Sender: FDA-Public Use
  Company Number: 1818934

PATIENT
  Age: 42 Year
  Sex: Female
  Weight: 92 kg

DRUGS (2)
  1. PACLITAXEL [Suspect]
     Indication: OVARIAN CANCER
     Dosage: (NOT OTHERWISE SPECIFIED)
     Route: 042
     Dates: start: 20130702, end: 20130702
  2. CARBOPLATIN [Concomitant]

REACTIONS (4)
  - Visual field defect [None]
  - Dizziness [None]
  - Feeling hot [None]
  - Hypersensitivity [None]
